FAERS Safety Report 9101041 (Version 1)
Quarter: 2013Q1

REPORT INFORMATION
  Report Type: Spontaneous
  Country: US (occurrence: US)
  Receive Date: 20130215
  Receipt Date: 20130215
  Transmission Date: 20140127
  Serious: Yes (Death, Hospitalization)
  Sender: FDA-Public Use
  Company Number: US-BANPHARM-20130758

PATIENT
  Age: 31 Year
  Sex: Male

DRUGS (1)
  1. DIPHENHYDRAMINE UNKNOWN PRODUCT [Suspect]
     Dosage: 2-3 BOTTLES,
     Route: 048

REACTIONS (11)
  - Completed suicide [Fatal]
  - Convulsion [Fatal]
  - Bradycardia [Fatal]
  - Cardiac arrest [Fatal]
  - Hypotension [Fatal]
  - Acute respiratory distress syndrome [Fatal]
  - Intentional overdose [Fatal]
  - Pulmonary congestion [None]
  - Toxicity to various agents [None]
  - Blood creatine phosphokinase increased [None]
  - Blood lactic acid increased [None]
